FAERS Safety Report 5627198-1 (Version None)
Quarter: 2008Q1

REPORT INFORMATION
  Report Type: 
  Country: None (occurrence: None)
  Receive Date: 20080212
  Receipt Date: 20080212
  Transmission Date: 20080703
  Serious: Yes (Other)
  Sender: FDA-Public Use
  Company Number: None

PATIENT
  Sex: Female
  Weight: 77.1115 kg

DRUGS (1)
  1. PAIN PATCH FOR BACK    ASPERCREME [Suspect]
     Indication: BACK PAIN
     Dosage: ONE PATCH  ONCE
     Dates: start: 20071226, end: 20071227

REACTIONS (3)
  - APPLICATION SITE BURN [None]
  - APPLICATION SITE VESICLES [None]
  - PAIN [None]
